FAERS Safety Report 18676369 (Version 2)
Quarter: 2023Q1

REPORT INFORMATION
  Report Type: Spontaneous
  Country: DE (occurrence: DE)
  Receive Date: 20201229
  Receipt Date: 20230127
  Transmission Date: 20230417
  Serious: Yes (Hospitalization, Other)
  Sender: FDA-Public Use
  Company Number: DE-ADRED-06049-01

PATIENT
  Age: 58 Year
  Sex: Female
  Weight: 65 kg

DRUGS (11)
  1. PREGABALIN [Suspect]
     Active Substance: PREGABALIN
     Indication: Product used for unknown indication
     Dosage: 25 MG, 1-0-2-0 ()
     Route: 065
  2. TAMOXIFEN [Suspect]
     Active Substance: TAMOXIFEN
     Indication: Product used for unknown indication
     Dosage: 20 MG, 1-0-0-0 ()
     Route: 065
  3. Hepar-SL forte 600mg [Concomitant]
     Indication: Product used for unknown indication
     Dosage: 600 MG, 1-0-0-0 ()
     Route: 065
  4. FOLIC ACID [Concomitant]
     Active Substance: FOLIC ACID
     Indication: Product used for unknown indication
     Dosage: 5 MG, 1-0-0-0 ()
     Route: 065
  5. ALEPAFORT [Concomitant]
     Indication: Product used for unknown indication
     Dosage: 208.9 MG, 1-0-0-0 ()
     Route: 065
  6. METAMIZOL [Concomitant]
     Active Substance: METAMIZOLE SODIUM
     Indication: Product used for unknown indication
     Dosage: 500 MG, BEDARF ()
     Route: 065
  7. Selen(IV)-Ion [Concomitant]
     Indication: Product used for unknown indication
     Dosage: UNK
     Route: 065
  8. Eisen(II) [Concomitant]
     Indication: Product used for unknown indication
     Dosage: 40 MG, 1-0-1-0 ()
     Route: 065
  9. Calcimagon D3 500mg/400I.E. [Concomitant]
     Indication: Product used for unknown indication
     Dosage: 500/400 MG/IE, 0-1-0-0, KAUTABLETTEN ()
     Route: 065
  10. CHOLECALCIFEROL [Concomitant]
     Active Substance: CHOLECALCIFEROL
     Indication: Product used for unknown indication
     Dosage: 1000 IE, 1-0-0-0 ()
     Route: 065
  11. vitamin B12-Loges Injektionslosung [Concomitant]
     Indication: Product used for unknown indication
     Dosage: 1-0-0-0 ()
     Route: 065

REACTIONS (4)
  - Hepatic cirrhosis [Unknown]
  - Jaundice [Unknown]
  - Ascites [Unknown]
  - Nausea [Unknown]
